FAERS Safety Report 6081918-3 (Version None)
Quarter: 2009Q1

REPORT INFORMATION
  Report Type: 
  Country: None (occurrence: None)
  Receive Date: 20090218
  Receipt Date: 20080527
  Transmission Date: 20090719
  Serious: No
  Sender: FDA-Public Use
  Company Number: US-BRISTOL-MYERS SQUIBB COMPANY-14207187

PATIENT
  Sex: Female

DRUGS (6)
  1. GLUCOPHAGE [Suspect]
  2. HUMULIN R [Suspect]
     Dosage: 70/30 R.N
  3. NOVOLIN [Suspect]
     Dosage: 70/30 R.N
  4. ACTOS [Suspect]
     Indication: BLOOD GLUCOSE
     Route: 048
  5. BYETTA [Suspect]
     Indication: BLOOD GLUCOSE
  6. SYMLIN [Suspect]

REACTIONS (1)
  - DIARRHOEA [None]
